FAERS Safety Report 20867550 (Version 1)
Quarter: 2022Q2

REPORT INFORMATION
  Report Type: Spontaneous
  Country: US (occurrence: None)
  Receive Date: 20220523
  Receipt Date: 20220523
  Transmission Date: 20220721
  Serious: No
  Sender: FDA-Public Use
  Company Number: None

PATIENT
  Age: 61 Year
  Sex: Female

DRUGS (1)
  1. HYDROXOCOBALAMIN [Suspect]
     Active Substance: HYDROXOCOBALAMIN
     Dosage: 1 ML TWO TIMES A WEEK INTRAMUSCULAR?
     Route: 030
     Dates: start: 20210804, end: 20220520

REACTIONS (5)
  - Pyrexia [None]
  - Chills [None]
  - Myalgia [None]
  - Headache [None]
  - Insomnia [None]
